FAERS Safety Report 16256277 (Version 2)
Quarter: 2019Q2

REPORT INFORMATION
  Report Type: Spontaneous
  Country: GB (occurrence: GB)
  Receive Date: 20190430
  Receipt Date: 20190614
  Transmission Date: 20190711
  Serious: Yes (Hospitalization)
  Sender: FDA-Public Use
  Company Number: GB-ASTRAZENECA-2019SE63815

PATIENT
  Age: 61 Year
  Sex: Male

DRUGS (1)
  1. SEROQUEL [Suspect]
     Active Substance: QUETIAPINE FUMARATE
     Route: 048
     Dates: start: 201903

REACTIONS (8)
  - Mood swings [Unknown]
  - Panic attack [Unknown]
  - Suicidal ideation [Unknown]
  - Sleep deficit [Unknown]
  - Vision blurred [Unknown]
  - Off label use [Unknown]
  - Tremor [Unknown]
  - Aggression [Unknown]

NARRATIVE: CASE EVENT DATE: 201903
